FAERS Safety Report 13647217 (Version 1)
Quarter: 2017Q2

REPORT INFORMATION
  Report Type: Spontaneous
  Country: US (occurrence: US)
  Receive Date: 20170613
  Receipt Date: 20170613
  Transmission Date: 20170830
  Serious: Yes (Other)
  Sender: FDA-Public Use
  Company Number: None

PATIENT
  Age: 52 Year
  Sex: Female
  Weight: 75.6 kg

DRUGS (6)
  1. SYNTHROID [Concomitant]
     Active Substance: LEVOTHYROXINE SODIUM
  2. TRINTELLIX [Suspect]
     Active Substance: VORTIOXETINE HYDROBROMIDE
     Indication: MAJOR DEPRESSION
     Dosage: ?          QUANTITY:1 TABLET(S);?
     Route: 048
     Dates: start: 20170519, end: 20170609
  3. LIOTHYRONINE [Concomitant]
     Active Substance: LIOTHYRONINE
  4. ESTRADIOL TRANSDERMAL SYSTEM [Concomitant]
     Active Substance: ESTRADIOL
  5. MULTI-VITAMIN [Concomitant]
     Active Substance: .ALPHA.-TOCOPHEROL ACETATE, DL-\ASCORBIC ACID\CYANOCOBALAMIN\FLUORIDE ION\FOLIC ACID\NIACIN\PYRIDOXINE\RIBOFLAVIN\THIAMINE\VITAMIN A\VITAMIN D
  6. CURCUMIN [Concomitant]
     Active Substance: CURCUMIN

REACTIONS (13)
  - Nausea [None]
  - Anxiety [None]
  - Mental impairment [None]
  - Depression [None]
  - Dizziness [None]
  - Anger [None]
  - Tinnitus [None]
  - Irritability [None]
  - Unevaluable event [None]
  - Diarrhoea [None]
  - Panic attack [None]
  - Fatigue [None]
  - Crying [None]

NARRATIVE: CASE EVENT DATE: 20170605
